FAERS Safety Report 6307726-3 (Version None)
Quarter: 2009Q3

REPORT INFORMATION
  Report Type: 
  Country: None (occurrence: None)
  Receive Date: 20090813
  Receipt Date: 20090806
  Transmission Date: 20100115
  Serious: Yes (Other)
  Sender: FDA-Public Use
  Company Number: CH-AMGEN-QUU359065

PATIENT
  Age: 44 Year
  Sex: Female
  Weight: 50 kg

DRUGS (5)
  1. NEULASTA [Suspect]
     Indication: CHEMOTHERAPY
     Route: 058
     Dates: start: 20090728, end: 20090728
  2. EPIRUBICIN [Concomitant]
     Route: 042
     Dates: start: 20090618
  3. CYCLOPHOSPHAMIDE [Concomitant]
     Route: 042
     Dates: start: 20090618
  4. EMEND [Concomitant]
     Route: 048
     Dates: start: 20090618
  5. NAVOBAN [Concomitant]
     Route: 042
     Dates: start: 20090618

REACTIONS (5)
  - DYSPNOEA [None]
  - HYPERSENSITIVITY [None]
  - PRURITUS [None]
  - PYREXIA [None]
  - TACHYCARDIA [None]
